FAERS Safety Report 10187434 (Version 1)
Quarter: 2014Q2

REPORT INFORMATION
  Report Type: Spontaneous
  Country: US (occurrence: None)
  Receive Date: 20140520
  Receipt Date: 20140520
  Transmission Date: 20141212
  Serious: Yes (Disabling, Other)
  Sender: FDA-Public Use
  Company Number: 201405036

PATIENT
  Sex: Male

DRUGS (3)
  1. TESTIM (TESTOSTERONE) [Suspect]
     Indication: BLOOD TEST
     Dates: start: 2004, end: 201310
  2. ANDROGEL [Suspect]
     Indication: BLOOD TESTOSTERONE DECREASED
  3. FORTESTA [Suspect]
     Indication: BLOOD TESTOSTERONE DECREASED

REACTIONS (4)
  - Cerebrovascular accident [None]
  - Clumsiness [None]
  - Asthenia [None]
  - Speech disorder [None]
